FAERS Safety Report 9356744 (Version 1)
Quarter: 2013Q2

REPORT INFORMATION
  Report Type: Spontaneous
  Country: AU (occurrence: AU)
  Receive Date: 20130619
  Receipt Date: 20130619
  Transmission Date: 20140414
  Serious: Yes (Other)
  Sender: FDA-Public Use
  Company Number: PHHY2013AU062161

PATIENT
  Age: 35 Year
  Sex: Female

DRUGS (2)
  1. RITALIN [Suspect]
  2. DUROMINE [Interacting]

REACTIONS (1)
  - Atrial fibrillation [Unknown]
